FAERS Safety Report 7916818-4 (Version None)
Quarter: 2011Q4

REPORT INFORMATION
  Report Type: 
  Country: None (occurrence: None)
  Receive Date: 20111116
  Receipt Date: 20111111
  Transmission Date: 20120403
  Serious: Yes (Hospitalization)
  Sender: FDA-Public Use
  Company Number: JP-B.I. PHARMACEUTICALS,INC./RIDGEFIELD-2011-BP-23566NB

PATIENT
  Sex: Male

DRUGS (4)
  1. GLYBURIDE [Concomitant]
     Indication: DIABETES MELLITUS
     Dosage: 1.25 MG
     Route: 048
     Dates: start: 19990805
  2. JANUVIA [Suspect]
     Indication: DIABETES MELLITUS
     Dosage: 50 MG
     Route: 048
     Dates: start: 20110829, end: 20110929
  3. TELMISARTAN/AMLODIPINE [Suspect]
     Indication: HYPERTENSION
     Route: 048
     Dates: start: 20110829, end: 20110929
  4. BUTERAZINE [Concomitant]
     Indication: HYPERTENSION
     Dosage: 120 MG
     Route: 048
     Dates: start: 19971213

REACTIONS (1)
  - ANGINA PECTORIS [None]
